FAERS Safety Report 19789480 (Version 1)
Quarter: 2021Q3

REPORT INFORMATION
  Report Type: Spontaneous
  Country: US (occurrence: US)
  Receive Date: 20210904
  Receipt Date: 20210904
  Transmission Date: 20211014
  Serious: No
  Sender: FDA-Public Use
  Company Number: US-GLAXOSMITHKLINE-US2021180701

PATIENT
  Age: 58 Year
  Sex: Female
  Weight: 69.4 kg

DRUGS (2)
  1. ZEJULA [Suspect]
     Active Substance: NIRAPARIB
     Indication: OVARIAN CANCER
     Dosage: 200 MG, QD
     Route: 048
     Dates: start: 20210809
  2. GUAIATUSSIN [Concomitant]
     Indication: COUGH
     Dosage: UNK

REACTIONS (4)
  - Blood pressure increased [Unknown]
  - Stomatitis [Unknown]
  - Constipation [Unknown]
  - Platelet count decreased [Unknown]

NARRATIVE: CASE EVENT DATE: 202108
